FAERS Safety Report 9438585 (Version 2)
Quarter: 2013Q3

REPORT INFORMATION
  Report Type: Spontaneous
  Country: US (occurrence: US)
  Receive Date: 20130802
  Receipt Date: 20130809
  Transmission Date: 20140515
  Serious: No
  Sender: FDA-Public Use
  Company Number: US-BAXTER-2013BAX028561

PATIENT
  Sex: Male

DRUGS (1)
  1. DIANEAL LOW CALCIUM [Suspect]
     Indication: PERITONEAL DIALYSIS
     Route: 033

REACTIONS (5)
  - Pneumoperitoneum [Recovering/Resolving]
  - Cyanosis [Recovered/Resolved]
  - Pallor [Recovered/Resolved]
  - Abdominal distension [Recovering/Resolving]
  - Discomfort [Recovering/Resolving]
